FAERS Safety Report 14681719 (Version 1)
Quarter: 2018Q1

REPORT INFORMATION
  Report Type: Spontaneous
  Country: US (occurrence: US)
  Receive Date: 20180326
  Receipt Date: 20180326
  Transmission Date: 20180509
  Serious: Yes (Other)
  Sender: FDA-Public Use
  Company Number: US-SYNEX-T201801150

PATIENT
  Sex: Male

DRUGS (2)
  1. TOBRAMYCIN. [Concomitant]
     Active Substance: TOBRAMYCIN
     Indication: PRODUCT USED FOR UNKNOWN INDICATION
  2. INOMAX [Suspect]
     Active Substance: NITRIC OXIDE
     Indication: PRODUCT USED FOR UNKNOWN INDICATION
     Dosage: 20 PPM
     Route: 065
     Dates: start: 20180227

REACTIONS (4)
  - Oxygen saturation decreased [Recovered/Resolved]
  - Device issue [Unknown]
  - Blood pressure decreased [Recovered/Resolved]
  - Drug administered to patient of inappropriate age [Unknown]
